FAERS Safety Report 11697346 (Version 1)
Quarter: 2015Q4

REPORT INFORMATION
  Report Type: Spontaneous
  Country: US (occurrence: US)
  Receive Date: 20151104
  Receipt Date: 20151104
  Transmission Date: 20160304
  Serious: No
  Sender: FDA-Public Use
  Company Number: GXBR2015US002149

PATIENT
  Sex: Male
  Weight: 83.9 kg

DRUGS (4)
  1. ZOLPIDEM [Concomitant]
     Active Substance: ZOLPIDEM\ZOLPIDEM TARTRATE
     Indication: SLEEP DISORDER
     Dosage: UNK DF, UNK
  2. ENOXAPARIN SODIUM. [Suspect]
     Active Substance: ENOXAPARIN SODIUM
     Indication: THROMBOSIS
     Dosage: 80 MG, BID
     Route: 065
     Dates: start: 20150815
  3. DIPYRIDAMOLE. [Concomitant]
     Active Substance: DIPYRIDAMOLE
     Indication: THROMBOSIS
     Dosage: UNK DF, TID
  4. ACETAMINOPHEN. [Concomitant]
     Active Substance: ACETAMINOPHEN
     Indication: PAIN
     Dosage: UNK DF, UNK

REACTIONS (3)
  - Poor quality sleep [Not Recovered/Not Resolved]
  - Back pain [Not Recovered/Not Resolved]
  - Injection site mass [Not Recovered/Not Resolved]
